FAERS Safety Report 12948718 (Version 1)
Quarter: 2016Q4

REPORT INFORMATION
  Report Type: Spontaneous
  Country: FR (occurrence: FR)
  Receive Date: 20161117
  Receipt Date: 20161117
  Transmission Date: 20170207
  Serious: Yes (Hospitalization)
  Sender: FDA-Public Use
  Company Number: FR-ELI_LILLY_AND_COMPANY-FR201611002328

PATIENT
  Age: 45 Year
  Sex: Female

DRUGS (14)
  1. TERCIAN                            /00759301/ [Concomitant]
     Active Substance: CYAMEMAZINE
     Indication: PRODUCT USED FOR UNKNOWN INDICATION
     Dosage: 25 MG, EACH EVENING
     Route: 065
  2. IBUPROFENE [Suspect]
     Active Substance: IBUPROFEN
     Indication: PRODUCT USED FOR UNKNOWN INDICATION
     Dosage: 2 G, SINGLE INTAKE
     Route: 048
     Dates: start: 20160718, end: 20160718
  3. XANAX [Suspect]
     Active Substance: ALPRAZOLAM
     Dosage: 18 DF, SINGLE INTAKE
     Route: 048
     Dates: start: 20160718, end: 20160718
  4. ZOLPIDEM [Suspect]
     Active Substance: ZOLPIDEM\ZOLPIDEM TARTRATE
     Indication: PRODUCT USED FOR UNKNOWN INDICATION
     Dosage: 210 MG, SINGLE INTAKE
     Route: 048
     Dates: start: 20160718, end: 20160718
  5. ZYPREXA [Suspect]
     Active Substance: OLANZAPINE
     Indication: PRODUCT USED FOR UNKNOWN INDICATION
     Dosage: 10 MG, QD
     Route: 048
  6. OMEPRAZOLE. [Suspect]
     Active Substance: OMEPRAZOLE
     Indication: PRODUCT USED FOR UNKNOWN INDICATION
     Dosage: 100 MG, SINGLE INTAKE
     Route: 048
     Dates: start: 20160718, end: 20160718
  7. ZYPREXA [Suspect]
     Active Substance: OLANZAPINE
     Dosage: 210 MG, SINGLE INTAKE
     Route: 048
     Dates: start: 20160718, end: 20160718
  8. SOLIAN [Suspect]
     Active Substance: AMISULPRIDE
     Dosage: 9 DF, SINGLE INTAKE
     Route: 048
     Dates: start: 20160718, end: 20160718
  9. CLORAZEPATE DIPOTASSIUM. [Suspect]
     Active Substance: CLORAZEPATE DIPOTASSIUM
     Indication: PRODUCT USED FOR UNKNOWN INDICATION
     Dosage: 40 MG, SINGLE INTAKE
     Route: 048
     Dates: start: 20160718, end: 20160718
  10. SERTRALINE [Concomitant]
     Active Substance: SERTRALINE HYDROCHLORIDE
     Indication: PRODUCT USED FOR UNKNOWN INDICATION
     Dosage: 50 MG, BID
     Route: 065
  11. XANAX [Suspect]
     Active Substance: ALPRAZOLAM
     Indication: PRODUCT USED FOR UNKNOWN INDICATION
     Dosage: UNK, PRN
     Route: 048
  12. SOLIAN [Suspect]
     Active Substance: AMISULPRIDE
     Indication: PRODUCT USED FOR UNKNOWN INDICATION
     Dosage: 3 DF, QD
     Route: 048
  13. METEOSPASMYL [Suspect]
     Active Substance: ALVERINE CITRATE\DIMETHICONE
     Indication: PRODUCT USED FOR UNKNOWN INDICATION
     Dosage: 3 DF, SINGLE INTAKE
     Route: 048
     Dates: start: 20160718, end: 20160718
  14. DIAZEPAM. [Suspect]
     Active Substance: DIAZEPAM
     Indication: PRODUCT USED FOR UNKNOWN INDICATION
     Dosage: 50 MG, SINGLE INTAKE
     Route: 048
     Dates: start: 20160718, end: 20160718

REACTIONS (10)
  - Intentional overdose [Unknown]
  - Miosis [Recovered/Resolved]
  - Electrocardiogram QT prolonged [Unknown]
  - Disturbance in attention [Recovered/Resolved]
  - Extensor plantar response [Recovered/Resolved]
  - Blood pressure systolic increased [Unknown]
  - Coma [Recovered/Resolved]
  - Suicide attempt [Unknown]
  - Sinus tachycardia [Unknown]
  - Confusional state [Unknown]

NARRATIVE: CASE EVENT DATE: 20160718
